FAERS Safety Report 4304042-6 (Version None)
Quarter: 2004Q1

REPORT INFORMATION
  Report Type: 
  Country: None (occurrence: None)
  Receive Date: 20040223
  Receipt Date: 20040114
  Transmission Date: 20041129
  Serious: No
  Sender: FDA-Public Use
  Company Number: PHEH2004US00855

PATIENT
  Age: 46 Year
  Sex: Female

DRUGS (7)
  1. ZELNORM [Suspect]
     Indication: IRRITABLE BOWEL SYNDROME
     Dosage: 6 MG, QD, ORAL
     Route: 048
     Dates: start: 20040102
  2. ADVAIR (SALMETEROL XINAFOATE) [Concomitant]
  3. PROVENTIL (SALBUTAMOL SULFATE) [Concomitant]
  4. SYNTHROID [Concomitant]
  5. ZYRTEC [Concomitant]
  6. NEXIUM [Concomitant]
  7. CENESTIN (ESTROGENS CONJUGATED) [Concomitant]

REACTIONS (2)
  - OEDEMA PERIPHERAL [None]
  - SWELLING FACE [None]
